FAERS Safety Report 5560506-9 (Version None)
Quarter: 2007Q4

REPORT INFORMATION
  Report Type: 
  Country: None (occurrence: None)
  Receive Date: 20071215
  Receipt Date: 20071108
  Transmission Date: 20080405
  Serious: No
  Sender: FDA-Public Use
  Company Number: US-ABBOTT-07P-163-0424651-00

PATIENT
  Sex: Female
  Weight: 56.75 kg

DRUGS (3)
  1. HUMIRA [Suspect]
     Indication: SPONDYLITIS
     Route: 058
     Dates: start: 20060301
  2. BIRTH CONTROL PILLS [Concomitant]
     Indication: CONTRACEPTION
     Route: 048
     Dates: start: 20060101
  3. METHOTREXATE [Concomitant]
     Indication: SPONDYLITIS
     Route: 048
     Dates: start: 20060101

REACTIONS (2)
  - INFECTIOUS MONONUCLEOSIS [None]
  - STREPTOCOCCAL INFECTION [None]
